FAERS Safety Report 9402488 (Version 1)
Quarter: 2013Q3

REPORT INFORMATION
  Report Type: Report from Study
  Country: US (occurrence: US)
  Receive Date: 20130716
  Receipt Date: 20130716
  Transmission Date: 20140515
  Serious: Yes (Hospitalization, Other)
  Sender: FDA-Public Use
  Company Number: US-SANOFI-AVENTIS-2013SA070976

PATIENT
  Sex: Female

DRUGS (1)
  1. AUBAGIO [Suspect]
     Route: 065

REACTIONS (5)
  - Ventricular tachycardia [Unknown]
  - Dyspnoea [Unknown]
  - Pruritus generalised [Unknown]
  - Alopecia [Unknown]
  - White blood cell count decreased [Unknown]
